FAERS Safety Report 8178291-3 (Version None)
Quarter: 2012Q1

REPORT INFORMATION
  Report Type: 
  Country: None (occurrence: None)
  Receive Date: 20120126
  Receipt Date: 20111006
  Transmission Date: 20120608
  Serious: No
  Sender: FDA-Public Use
  Company Number: PHHY2011US57973

PATIENT
  Age: 67 Year
  Sex: Female

DRUGS (1)
  1. AFINITOR [Suspect]
     Indication: CARCINOID TUMOUR
     Dosage: 10 MG, QD, ORAL
     Route: 048
     Dates: start: 20110613, end: 20110729

REACTIONS (3)
  - BURNING SENSATION [None]
  - SINUSITIS [None]
  - OROPHARYNGEAL PAIN [None]
